FAERS Safety Report 23456581 (Version 2)
Quarter: 2024Q1

REPORT INFORMATION
  Report Type: Report from Study
  Country: GB (occurrence: GB)
  Receive Date: 20240130
  Receipt Date: 20240209
  Transmission Date: 20240409
  Serious: Yes (Hospitalization, Other)
  Sender: FDA-Public Use
  Company Number: GB-SANDOZ-SDZ2024GB007697

PATIENT
  Sex: Male

DRUGS (1)
  1. OMNITROPE [Suspect]
     Active Substance: SOMATROPIN
     Indication: Hypopituitarism
     Dosage: 0.30 MG, QD
     Route: 058

REACTIONS (5)
  - Decubitus ulcer [Not Recovered/Not Resolved]
  - Sepsis [Not Recovered/Not Resolved]
  - Product storage error [Unknown]
  - Product communication issue [Unknown]
  - Poor quality product administered [Unknown]
